FAERS Safety Report 14586679 (Version 1)
Quarter: 2018Q1

REPORT INFORMATION
  Report Type: Report from Study
  Country: US (occurrence: US)
  Receive Date: 20180301
  Receipt Date: 20180301
  Transmission Date: 20180509
  Serious: Yes (Other)
  Sender: FDA-Public Use
  Company Number: US-AMGEN-USASL2018025549

PATIENT
  Age: 75 Year
  Sex: Male

DRUGS (3)
  1. ASA [Concomitant]
     Active Substance: ASPIRIN
     Dosage: 325 MG, QD
  2. REPATHA [Suspect]
     Active Substance: EVOLOCUMAB
     Indication: HYPERLIPIDAEMIA
     Dosage: 1 DF, Q2WK
     Route: 065
     Dates: start: 201703
  3. NITRO BID [Concomitant]
     Dosage: UNK
     Route: 062

REACTIONS (8)
  - Mobility decreased [Recovered/Resolved]
  - Decreased appetite [Unknown]
  - Reynold^s syndrome [Not Recovered/Not Resolved]
  - Back pain [Not Recovered/Not Resolved]
  - Weight decreased [Unknown]
  - Intermittent claudication [Not Recovered/Not Resolved]
  - Dizziness [Unknown]
  - Loss of personal independence in daily activities [Recovering/Resolving]

NARRATIVE: CASE EVENT DATE: 2017
